FAERS Safety Report 11971937 (Version 1)
Quarter: 2016Q1

REPORT INFORMATION
  Report Type: Spontaneous
  Country: US (occurrence: US)
  Receive Date: 20160128
  Receipt Date: 20160128
  Transmission Date: 20160526
  Serious: No
  Sender: FDA-Public Use
  Company Number: US-PFIZER INC-2016008375

PATIENT
  Sex: Female

DRUGS (4)
  1. NEOMYCIN SULFATE. [Suspect]
     Active Substance: NEOMYCIN SULFATE
     Dosage: UNK
     Route: 065
  2. NODOZ [Suspect]
     Active Substance: CAFFEINE
     Dosage: UNK
  3. GLUTEN [Suspect]
     Active Substance: WHEAT GLUTEN
     Dosage: UNK
  4. SODIUM SULFATE [Suspect]
     Active Substance: SODIUM SULFATE
     Dosage: UNK

REACTIONS (1)
  - Drug hypersensitivity [Not Recovered/Not Resolved]
